FAERS Safety Report 6582876-5 (Version None)
Quarter: 2010Q1

REPORT INFORMATION
  Report Type: 
  Country: None (occurrence: None)
  Receive Date: 20100203
  Receipt Date: 20100126
  Transmission Date: 20100710
  Serious: Yes (Life-Threatening)
  Sender: FDA-Public Use
  Company Number: SPV1-2009-02274

PATIENT
  Age: 11 Year
  Sex: Male
  Weight: 27.2 kg

DRUGS (4)
  1. VYVANSE [Suspect]
     Indication: ATTENTION DEFICIT/HYPERACTIVITY DISORDER
     Dates: start: 20090101, end: 20090101
  2. METADATE CD [Suspect]
     Dates: start: 20090101, end: 20090101
  3. ADDERALL 10 [Suspect]
     Indication: ATTENTION DEFICIT/HYPERACTIVITY DISORDER
     Dates: start: 20090101, end: 20090101
  4. CONCERTA [Suspect]
     Indication: ATTENTION DEFICIT/HYPERACTIVITY DISORDER
     Dates: start: 20090101, end: 20090101

REACTIONS (10)
  - ANGIOPATHY [None]
  - CARDIOVASCULAR DISORDER [None]
  - ERYTHEMA [None]
  - FEELING HOT [None]
  - OEDEMA PERIPHERAL [None]
  - PALLOR [None]
  - PERIPHERAL COLDNESS [None]
  - PERIPHERAL VASCULAR DISORDER [None]
  - SKIN DISCOLOURATION [None]
  - SKIN EXFOLIATION [None]
